FAERS Safety Report 9830853 (Version 2)
Quarter: 2014Q1

REPORT INFORMATION
  Report Type: Spontaneous
  Country: HU (occurrence: HU)
  Receive Date: 20140120
  Receipt Date: 20140312
  Transmission Date: 20141002
  Serious: Yes (Other)
  Sender: FDA-Public Use
  Company Number: HU-ABBVIE-14P-076-1188840-00

PATIENT
  Age: 55 Year
  Sex: Male
  Weight: 95 kg

DRUGS (5)
  1. HUMIRA [Suspect]
     Indication: ANKYLOSING SPONDYLITIS
     Route: 058
     Dates: start: 201308, end: 20130930
  2. HUMIRA [Suspect]
     Route: 058
     Dates: start: 20130204, end: 201306
  3. SALAZOPYRIN [Concomitant]
     Indication: ANKYLOSING SPONDYLITIS
     Dosage: 3000 MG DAILY
     Route: 048
     Dates: start: 2004
  4. ARCOXIA [Concomitant]
     Indication: ANKYLOSING SPONDYLITIS
     Route: 048
     Dates: start: 201102
  5. LETROX [Concomitant]
     Route: 048
     Dates: end: 20131028

REACTIONS (2)
  - Lymphadenopathy [Unknown]
  - Chronic lymphocytic leukaemia [Not Recovered/Not Resolved]
